FAERS Safety Report 10149377 (Version 1)
Quarter: 2014Q2

REPORT INFORMATION
  Report Type: Spontaneous
  Country: US (occurrence: None)
  Receive Date: 20140430
  Receipt Date: 20140430
  Transmission Date: 20141212
  Serious: Yes (Death)
  Sender: FDA-Public Use
  Company Number: 2014US0197

PATIENT
  Age: 24 Year
  Sex: Female

DRUGS (6)
  1. ANAKINRA (ANAKINRA) [Suspect]
     Indication: FAMILIAL HAEMOPHAGOCYTIC LYMPHOHISTIOCYTOSIS
  2. IVIG (IMMUNOGLOBULINS NOS) [Concomitant]
  3. STEROIDS (CORTICOSTEROID NOS) [Concomitant]
  4. ETOPOSID (ETOPOSIDE) [Concomitant]
  5. DEXAMETHASONE (DEXAMETHASONE) [Concomitant]
  6. CICLOSPORIN (CICLOSPORIN) [Concomitant]

REACTIONS (6)
  - Pancytopenia [None]
  - Splenomegaly [None]
  - Serum ferritin increased [None]
  - Blood triglycerides increased [None]
  - Histiocytosis haematophagic [None]
  - Condition aggravated [None]
